FAERS Safety Report 19136140 (Version 1)
Quarter: 2021Q2

REPORT INFORMATION
  Report Type: Report from Study
  Country: JP (occurrence: JP)
  Receive Date: 20210414
  Receipt Date: 20210414
  Transmission Date: 20210717
  Serious: Yes (Hospitalization)
  Sender: FDA-Public Use
  Company Number: JP-ASTRAZENECA-2021A285448

PATIENT
  Age: 49 Year
  Sex: Male
  Weight: 70 kg

DRUGS (1)
  1. IMFINZI [Suspect]
     Active Substance: DURVALUMAB
     Indication: NON-SMALL CELL LUNG CANCER
     Dosage: 500 MG
     Route: 041
     Dates: start: 20200929, end: 20201013

REACTIONS (1)
  - Radiation pneumonitis [Recovered/Resolved]

NARRATIVE: CASE EVENT DATE: 20201027
